FAERS Safety Report 11888463 (Version 2)
Quarter: 2016Q3

REPORT INFORMATION
  Report Type: Spontaneous
  Country: FR (occurrence: FR)
  Receive Date: 20160105
  Receipt Date: 20160824
  Transmission Date: 20161109
  Serious: Yes (Hospitalization)
  Sender: FDA-Public Use
  Company Number: FR-MYLANLABS-2015M1047111

PATIENT

DRUGS (7)
  1. RAMIPRIL. [Suspect]
     Active Substance: RAMIPRIL
     Dosage: UNK
     Dates: start: 2015
  2. BISOCE 5 MG, COMPRIM? PELLICUL? S?CABLE [Suspect]
     Active Substance: BISOPROLOL
     Dosage: 1 DF, BID
     Route: 048
     Dates: start: 2015
  3. LASILIX                            /00032601/ [Suspect]
     Active Substance: FUROSEMIDE
     Indication: CARDIAC FAILURE
     Dosage: 1 DF, QD
     Route: 048
     Dates: start: 20150616, end: 2015
  4. LASILIX                            /00032601/ [Suspect]
     Active Substance: FUROSEMIDE
     Dosage: UNK
     Dates: start: 2015
  5. BISOCE 5 MG, COMPRIM? PELLICUL? S?CABLE [Suspect]
     Active Substance: BISOPROLOL
     Indication: CARDIAC FAILURE
     Dosage: 1 DF, QD
     Route: 048
     Dates: start: 20150617, end: 2015
  6. COUMADINE [Suspect]
     Active Substance: WARFARIN SODIUM
     Indication: CARDIAC FAILURE
     Dosage: 4 MG, QD
     Route: 048
     Dates: start: 20150617, end: 20151116
  7. RAMIPRIL. [Suspect]
     Active Substance: RAMIPRIL
     Indication: CARDIAC FAILURE
     Dosage: 5 MG, QD
     Route: 048
     Dates: start: 20150620, end: 2015

REACTIONS (5)
  - Transient ischaemic attack [Unknown]
  - Charles Bonnet syndrome [Unknown]
  - Hallucination, visual [Unknown]
  - Abnormal behaviour [Unknown]
  - Hallucination, olfactory [Unknown]

NARRATIVE: CASE EVENT DATE: 20150720
